FAERS Safety Report 5205196-X (Version None)
Quarter: 2007Q1

REPORT INFORMATION
  Report Type: 
  Country: None (occurrence: None)
  Receive Date: 20070108
  Receipt Date: 20070102
  Transmission Date: 20070707
  Serious: Yes (Hospitalization)
  Sender: FDA-Public Use
  Company Number: RS004593-AUS

PATIENT
  Age: 63 Year
  Sex: Male

DRUGS (12)
  1. RABEPRAZOLE SODIUM [Suspect]
     Indication: ILL-DEFINED DISORDER
     Dosage: ORAL
     Route: 048
     Dates: start: 20031210
  2. RABEPRAZOLE SODIUM [Suspect]
     Indication: NAUSEA
     Dosage: ORAL
     Route: 048
     Dates: start: 20031210
  3. NEXIUM [Concomitant]
  4. AVAPRO [Concomitant]
  5. NORVASC [Concomitant]
  6. LIPITOR [Concomitant]
  7. ESOMEPRAZOLE (ESOMEPRAZOLE) [Concomitant]
  8. IRBESARTAN [Concomitant]
  9. AMLODIPINE [Concomitant]
  10. ROFECOXIB [Concomitant]
  11. HYDROCHLOROTHIAZIDE [Concomitant]
  12. PREDNISOLONE [Concomitant]

REACTIONS (7)
  - DRUG INEFFECTIVE [None]
  - NEPHRITIS INTERSTITIAL [None]
  - NO THERAPEUTIC RESPONSE [None]
  - NORMOCHROMIC NORMOCYTIC ANAEMIA [None]
  - PERITONEAL DIALYSIS [None]
  - RENAL FAILURE [None]
  - WEIGHT DECREASED [None]
